FAERS Safety Report 23986874 (Version 2)
Quarter: 2024Q2

REPORT INFORMATION
  Report Type: Spontaneous
  Country: US (occurrence: US)
  Receive Date: 20240618
  Receipt Date: 20240627
  Transmission Date: 20240715
  Serious: Yes (Death, Life-Threatening, Hospitalization, Other)
  Sender: FDA-Public Use
  Company Number: US-PFIZER INC-PV202400078520

PATIENT
  Age: 71 Year
  Sex: Female

DRUGS (2)
  1. AZITHROMYCIN [Suspect]
     Active Substance: AZITHROMYCIN
     Indication: Bronchitis
     Dosage: UNK
  2. LISINOPRIL [Concomitant]
     Active Substance: LISINOPRIL
     Indication: Bronchitis

REACTIONS (7)
  - SJS-TEN overlap [Fatal]
  - Sepsis [Fatal]
  - Urinary tract infection [Fatal]
  - Bacteraemia [Fatal]
  - Pneumonia [Fatal]
  - Cardiac arrest [Fatal]
  - Off label use [Unknown]
